FAERS Safety Report 19584539 (Version 1)
Quarter: 2021Q3

REPORT INFORMATION
  Report Type: Spontaneous
  Country: US (occurrence: US)
  Receive Date: 20210720
  Receipt Date: 20210720
  Transmission Date: 20211014
  Serious: Yes (Other)
  Sender: FDA-Public Use
  Company Number: US-BRAINTREE LABORATORIES, INC.-2021BTE00574

PATIENT
  Sex: Female

DRUGS (5)
  1. PROTONIX [Concomitant]
     Active Substance: PANTOPRAZOLE SODIUM
  2. AJOVY [Concomitant]
     Active Substance: FREMANEZUMAB-VFRM
     Dosage: UNK, 1X/MONTH
  3. XANAX [Concomitant]
     Active Substance: ALPRAZOLAM
  4. LIDOCAINE. [Concomitant]
     Active Substance: LIDOCAINE
  5. SUTAB [Suspect]
     Active Substance: MAGNESIUM SULFATE\POTASSIUM CHLORIDE\SODIUM SULFATE
     Dosage: 1 X 12 TABLETS, 1X
     Route: 048

REACTIONS (3)
  - Dehydration [Recovering/Resolving]
  - Loss of consciousness [Recovered/Resolved]
  - Migraine [Recovering/Resolving]
